FAERS Safety Report 10480292 (Version 1)
Quarter: 2014Q3

REPORT INFORMATION
  Report Type: Spontaneous
  Country: US (occurrence: US)
  Receive Date: 20140929
  Receipt Date: 20140929
  Transmission Date: 20150326
  Serious: Yes (Hospitalization)
  Sender: FDA-Public Use
  Company Number: US-SHIRE-US201406053

PATIENT
  Age: 64 Year
  Sex: Female
  Weight: 69.39 kg

DRUGS (14)
  1. HUMIRA [Suspect]
     Active Substance: ADALIMUMAB
     Dosage: 80 MG, ONE DOSE
     Route: 058
     Dates: start: 2008, end: 2008
  2. HUMIRA [Suspect]
     Active Substance: ADALIMUMAB
     Dosage: 40 MG, 1X/2WKS
     Route: 058
     Dates: start: 2008, end: 2014
  3. HUMIRA [Suspect]
     Active Substance: ADALIMUMAB
     Dosage: 40 MG, 1X/WEEK
     Route: 058
     Dates: start: 20140610
  4. HUMIRA [Suspect]
     Active Substance: ADALIMUMAB
     Dosage: 40 MG, 1X/WEEK
     Route: 058
     Dates: start: 201405
  5. PENTASA [Suspect]
     Active Substance: MESALAMINE
     Indication: CROHN^S DISEASE
     Dosage: UNK, UNKNOWN
     Route: 048
  6. LOVENOX [Concomitant]
     Active Substance: ENOXAPARIN SODIUM
     Indication: THROMBOSIS PROPHYLAXIS
     Dosage: UNK, UNKNOWN
     Route: 065
     Dates: start: 201405
  7. HUMIRA [Suspect]
     Active Substance: ADALIMUMAB
     Indication: CROHN^S DISEASE
     Dosage: 160 MG, ONE DOSE
     Route: 058
     Dates: start: 20080722, end: 20080722
  8. PHENERGAN [Concomitant]
     Active Substance: PROMETHAZINE HYDROCHLORIDE
     Indication: PRODUCT USED FOR UNKNOWN INDICATION
     Dosage: UNK, AS REQ^D
     Route: 048
  9. PREDNISONE. [Suspect]
     Active Substance: PREDNISONE
     Indication: INFLAMMATION
  10. PREDNISONE. [Suspect]
     Active Substance: PREDNISONE
     Indication: LARGE INTESTINAL OBSTRUCTION
     Dosage: UNK, UNKNOWN
     Route: 065
     Dates: start: 20131113
  11. AZATHIOPRINE. [Suspect]
     Active Substance: AZATHIOPRINE
     Indication: PRODUCT USED FOR UNKNOWN INDICATION
     Dosage: UNK, UNKNOWN
     Route: 065
     Dates: start: 20140814
  12. PREDNISONE. [Suspect]
     Active Substance: PREDNISONE
     Indication: CROHN^S DISEASE
     Dosage: 40 MG, 1X/DAY:QD
     Route: 065
  13. PREDNISONE. [Suspect]
     Active Substance: PREDNISONE
     Indication: SWELLING
  14. NEXIUM [Concomitant]
     Active Substance: ESOMEPRAZOLE MAGNESIUM
     Indication: CROHN^S DISEASE
     Dosage: UNK, UNKNOWN
     Route: 065

REACTIONS (18)
  - Crohn^s disease [Recovered/Resolved]
  - Flatulence [Recovered/Resolved]
  - Gastrointestinal disorder [Unknown]
  - Diarrhoea [Unknown]
  - Swelling [Unknown]
  - Retching [Recovered/Resolved]
  - Intestinal obstruction [Unknown]
  - Vomiting [Recovered/Resolved]
  - Small intestinal obstruction [Recovered/Resolved]
  - Large intestinal obstruction [Unknown]
  - Gastrointestinal inflammation [Unknown]
  - Abdominal pain upper [Unknown]
  - Intestinal mucosal hypertrophy [Unknown]
  - Ascites [Unknown]
  - Nausea [Unknown]
  - Off label use [Unknown]
  - Cholelithiasis [Recovered/Resolved]
  - Oral candidiasis [Recovering/Resolving]

NARRATIVE: CASE EVENT DATE: 201311
